FAERS Safety Report 10062195 (Version 1)
Quarter: 2014Q2

REPORT INFORMATION
  Report Type: Report from Study
  Country: CA (occurrence: CA)
  Receive Date: 20140407
  Receipt Date: 20140407
  Transmission Date: 20141212
  Serious: Yes (Other)
  Sender: FDA-Public Use
  Company Number: CA-JNJFOC-20140401443

PATIENT
  Age: 46 Year
  Sex: Female
  Weight: 101 kg

DRUGS (2)
  1. REMICADE [Suspect]
     Indication: COLITIS ULCERATIVE
     Dosage: AT 0, 2, 6 THEN EVERY 8 WEEKS
     Route: 042
     Dates: start: 20140313, end: 20140331
  2. PREDNISONE [Concomitant]
     Route: 065

REACTIONS (2)
  - Colitis ischaemic [Not Recovered/Not Resolved]
  - Escherichia infection [Not Recovered/Not Resolved]
